FAERS Safety Report 12753714 (Version 1)
Quarter: 2016Q3

REPORT INFORMATION
  Report Type: Report from Study
  Country: ES (occurrence: ES)
  Receive Date: 20160916
  Receipt Date: 20160916
  Transmission Date: 20161109
  Serious: Yes (Other)
  Sender: FDA-Public Use
  Company Number: ES-BAXTER-2016BAX046404

PATIENT
  Age: 73 Year

DRUGS (24)
  1. VINCRISTINE [Suspect]
     Active Substance: VINCRISTINE
     Dosage: COMPLETE DOSE, TREATMENT VISIT 2
     Route: 065
     Dates: start: 20110307, end: 20110311
  2. GENOXAL [Suspect]
     Active Substance: CYCLOPHOSPHAMIDE
     Dosage: COMPLETE DOSE, TREATMENT VISIT 4
     Route: 065
     Dates: start: 20110427, end: 20110501
  3. GENOXAL [Suspect]
     Active Substance: CYCLOPHOSPHAMIDE
     Dosage: COMPLETE DOSE, TREATMENT VISIT 6
     Route: 065
     Dates: start: 20110608, end: 20110612
  4. VINCRISTINE [Suspect]
     Active Substance: VINCRISTINE
     Dosage: COMPLETE DOSE, TREATMENT VISIT 4
     Route: 065
     Dates: start: 20110427, end: 20110501
  5. PREDNISONE. [Suspect]
     Active Substance: PREDNISONE
     Indication: CHRONIC LYMPHOCYTIC LEUKAEMIA
     Dosage: COMPLETE DOSE, TREATMENT VISIT 1
     Route: 065
     Dates: start: 20110214, end: 20110218
  6. PREDNISONE. [Suspect]
     Active Substance: PREDNISONE
     Dosage: COMPLETE DOSE, TREATMENT VISIT 3
     Route: 065
     Dates: start: 20110328, end: 20110401
  7. GENOXAL [Suspect]
     Active Substance: CYCLOPHOSPHAMIDE
     Dosage: COMPLETE DOSE, TREATMENT VISIT 3
     Route: 065
     Dates: start: 20110328, end: 20110401
  8. RITUXIMAB [Suspect]
     Active Substance: RITUXIMAB
     Dosage: COMPLETE DOSE, TREATMENT VISIT 2
     Route: 065
     Dates: start: 20110307, end: 20110311
  9. VINCRISTINE [Suspect]
     Active Substance: VINCRISTINE
     Indication: CHRONIC LYMPHOCYTIC LEUKAEMIA
     Dosage: COMPLETE DOSE, TREATMENT VISIT 1
     Route: 065
     Dates: start: 20110214, end: 20110218
  10. VINCRISTINE [Suspect]
     Active Substance: VINCRISTINE
     Dosage: COMPLETE DOSE, TREATMENT VISIT 5
     Route: 065
     Dates: start: 20110528, end: 20110601
  11. VINCRISTINE [Suspect]
     Active Substance: VINCRISTINE
     Dosage: COMPLETE DOSE, TREATMENT VISIT 6
     Route: 065
     Dates: start: 20110608, end: 20110612
  12. PREDNISONE. [Suspect]
     Active Substance: PREDNISONE
     Dosage: COMPLETE DOSE, TREATMENT VISIT 6
     Route: 065
     Dates: start: 20110608, end: 20110612
  13. GENOXAL [Suspect]
     Active Substance: CYCLOPHOSPHAMIDE
     Indication: CHRONIC LYMPHOCYTIC LEUKAEMIA
     Dosage: COMPLETE DOSE, TREATMENT VISIT 1
     Route: 065
     Dates: start: 20110214, end: 20110218
  14. RITUXIMAB [Suspect]
     Active Substance: RITUXIMAB
     Dosage: COMPLETE DOSE, TREATMENT VISIT 3
     Route: 065
     Dates: start: 20110328, end: 20110401
  15. RITUXIMAB [Suspect]
     Active Substance: RITUXIMAB
     Dosage: COMPLETE DOSE, TREATMENT VISIT 4
     Route: 065
     Dates: start: 20110427, end: 20110501
  16. RITUXIMAB [Suspect]
     Active Substance: RITUXIMAB
     Dosage: COMPLETE DOSE, TREATMENT VISIT 6
     Route: 065
     Dates: start: 20110608, end: 20110612
  17. RITUXIMAB [Suspect]
     Active Substance: RITUXIMAB
     Indication: CHRONIC LYMPHOCYTIC LEUKAEMIA
     Dosage: COMPLETE DOSE, TREATMENT VISIT 1
     Route: 065
     Dates: start: 20110214, end: 20110218
  18. RITUXIMAB [Suspect]
     Active Substance: RITUXIMAB
     Dosage: COMPLETE DOSE, TREATMENT VISIT 5
     Route: 065
     Dates: start: 20110528, end: 20110601
  19. VINCRISTINE [Suspect]
     Active Substance: VINCRISTINE
     Dosage: COMPLETE DOSE, TREATMENT VISIT 3
     Route: 065
     Dates: start: 20110328, end: 20110401
  20. PREDNISONE. [Suspect]
     Active Substance: PREDNISONE
     Dosage: COMPLETE DOSE, TREATMENT VISIT 5
     Route: 065
     Dates: start: 20110528, end: 20110601
  21. PREDNISONE. [Suspect]
     Active Substance: PREDNISONE
     Dosage: COMPLETE DOSE, TREATMENT VISIT 4
     Route: 065
     Dates: start: 20110427, end: 20110501
  22. GENOXAL [Suspect]
     Active Substance: CYCLOPHOSPHAMIDE
     Dosage: COMPLETE DOSE, TREATMENT VISIT 2
     Route: 065
     Dates: start: 20110307, end: 20110311
  23. GENOXAL [Suspect]
     Active Substance: CYCLOPHOSPHAMIDE
     Dosage: COMPLETE DOSE, TREATMENT VISIT 5
     Route: 065
     Dates: start: 20110528, end: 20110601
  24. PREDNISONE. [Suspect]
     Active Substance: PREDNISONE
     Dosage: COMPLETE DOSE, TREATMENT VISIT 2
     Route: 065
     Dates: start: 20110307, end: 20110311

REACTIONS (7)
  - Neutrophil count decreased [Recovered/Resolved]
  - Blood urea increased [Recovered/Resolved]
  - Hypoalbuminaemia [Recovered/Resolved]
  - Lymphocytosis [Recovered/Resolved]
  - Blood bilirubin decreased [Recovered/Resolved]
  - Blood immunoglobulin G increased [Recovered/Resolved]
  - Blood lactate dehydrogenase increased [Recovered/Resolved]

NARRATIVE: CASE EVENT DATE: 20110214
